FAERS Safety Report 7945525-7 (Version None)
Quarter: 2011Q4

REPORT INFORMATION
  Report Type: 
  Country: None (occurrence: None)
  Receive Date: 20111125
  Receipt Date: 20111109
  Transmission Date: 20120403
  Serious: Yes (Life-Threatening, Other)
  Sender: FDA-Public Use
  Company Number: NPIL/SEV/H/2011/33

PATIENT
  Age: 9 Month
  Sex: Male
  Weight: 6 kg

DRUGS (5)
  1. ATRACURIUM [Concomitant]
  2. SEVOFLURANE [Suspect]
     Indication: PATENT DUCTUS ARTERIOSUS REPAIR
     Dosage: 2%, ONCE, INHALATION
     Route: 055
  3. FENTANYL [Concomitant]
  4. MIDAZOLAM [Concomitant]
  5. PROPOFOL [Concomitant]

REACTIONS (4)
  - VENTRICULAR EXTRASYSTOLES [None]
  - VENTRICULAR FIBRILLATION [None]
  - SUPRAVENTRICULAR EXTRASYSTOLES [None]
  - LONG QT SYNDROME [None]
